FAERS Safety Report 7354917-9 (Version None)
Quarter: 2011Q1

REPORT INFORMATION
  Report Type: 
  Country: None (occurrence: None)
  Receive Date: 20110316
  Receipt Date: 20091130
  Transmission Date: 20110831
  Serious: Yes (Hospitalization, Other)
  Sender: FDA-Public Use
  Company Number: US-BAYER-200941162NA

PATIENT
  Sex: Male
  Weight: 96.599 kg

DRUGS (33)
  1. ACETYLSALICYLIC ACID SRT [Concomitant]
     Dosage: 81 MG, DAILY
     Route: 048
     Dates: start: 20020101
  2. TEMAZEPAM [Concomitant]
     Dosage: UNK
     Dates: start: 20050721
  3. VERAPAMIL [Concomitant]
     Dosage: UNK, VESSEL FLUSH
     Dates: start: 20050722
  4. ANCEF [Concomitant]
     Dosage: 1 G, UNK
     Route: 042
     Dates: start: 20050722
  5. SENSORCAINE-MPF [BUPIVACAINE HYDROCHLORIDE] [Concomitant]
     Dosage: UNK, PAIN PUMP
     Dates: start: 20050722
  6. ZESTRIL [Concomitant]
     Dosage: UNK
     Dates: start: 20030101
  7. LISINOPRIL [Concomitant]
     Dosage: UNK
     Dates: start: 20030101
  8. PROTAMINE SULFATE [Concomitant]
     Dosage: UNK
     Route: 042
     Dates: start: 20050722
  9. ATORVASTATIN [Concomitant]
     Dosage: UNK
     Dates: start: 20050718
  10. LANOXIN [Concomitant]
     Dosage: 0.25 MG, DAILY
     Route: 048
  11. HEPARIN [Concomitant]
     Dosage: UNK, IV AND VESSEL FLUSH
     Route: 042
     Dates: start: 20050722
  12. VYTORIN [Concomitant]
     Dosage: 10/40 MG/DAILY
     Route: 048
  13. GLUCOPHAGE [Concomitant]
     Dosage: 500 MG, DAILY
     Route: 048
  14. ZETIA [Concomitant]
     Dosage: 10 MG, DAILY
     Route: 048
  15. LABETALOL HCL [Concomitant]
     Dosage: 20 MG, TWICE A DAY
     Route: 048
  16. EPINEPHRINE [Concomitant]
     Dosage: UNK
     Route: 042
     Dates: start: 20050722
  17. TRASYLOL [Suspect]
     Indication: AORTIC VALVE REPLACEMENT
  18. LIPITOR [Concomitant]
  19. LEXAPRO [Concomitant]
     Dosage: 10 MG, DAILY
     Route: 048
  20. INSULIN [Concomitant]
     Dosage: UNK
     Dates: start: 20050719
  21. OPTIRAY 350 [Concomitant]
     Indication: CATHETERISATION CARDIAC
     Dosage: UNK
     Dates: start: 20050221
  22. COREG [Concomitant]
     Dosage: 3.125 MG, DAILY
     Route: 048
  23. PLAVIX [Concomitant]
     Dosage: 75 MG, DAILY
  24. PRIMACOR [Concomitant]
     Dosage: UNK
     Route: 042
     Dates: start: 20050722
  25. PROPOFOL [Concomitant]
     Dosage: UNK
     Route: 042
     Dates: start: 20050722
  26. PAPAVERINE [Concomitant]
     Dosage: UNK, VESSEL FLUSH
     Dates: start: 20050722
  27. GLUCOTROL XL [Concomitant]
     Dosage: 10 MG/TWICE A DAY
     Route: 048
  28. LEVOPHED [Concomitant]
     Dosage: UNK
     Dates: start: 20050722
  29. LIDOCAINE [Concomitant]
     Dosage: UNK,
     Route: 042
     Dates: start: 20050722
  30. TRASYLOL [Suspect]
     Indication: CORONARY ARTERY BYPASS
     Dosage: UNK, APROTININ FULL DOSE PROTOCOL
     Route: 042
     Dates: start: 20050722, end: 20050722
  31. DIOVAN [Concomitant]
     Dosage: 160 MG, DAILY
     Route: 048
  32. ISOVUE-128 [Concomitant]
     Indication: CATHETERISATION CARDIAC
     Dosage: UNK,
     Dates: start: 19960725
  33. OMNIPAQUE 140 [Concomitant]
     Indication: CATHETERISATION CARDIAC
     Dosage: UNK
     Dates: start: 20031218

REACTIONS (11)
  - EMOTIONAL DISTRESS [None]
  - ANHEDONIA [None]
  - RENAL IMPAIRMENT [None]
  - FEAR [None]
  - RENAL FAILURE [None]
  - PAIN [None]
  - STRESS [None]
  - ANXIETY [None]
  - INJURY [None]
  - RENAL INJURY [None]
  - UNEVALUABLE EVENT [None]
